FAERS Safety Report 18617355 (Version 1)
Quarter: 2020Q4

REPORT INFORMATION
  Report Type: Spontaneous
  Country: US (occurrence: US)
  Receive Date: 20201214
  Receipt Date: 20201214
  Transmission Date: 20210114
  Serious: Yes (Hospitalization, Other)
  Sender: FDA-Public Use
  Company Number: None

PATIENT
  Age: 67 Year
  Sex: Male
  Weight: 76.5 kg

DRUGS (7)
  1. ASPIRIN. [Concomitant]
     Active Substance: ASPIRIN
  2. ELIQUIS [Concomitant]
     Active Substance: APIXABAN
  3. IMMUNOTHERAPY-KEYTRUDA [Concomitant]
  4. INLYTA [Concomitant]
     Active Substance: AXITINIB
  5. BACTRIM [Suspect]
     Active Substance: SULFAMETHOXAZOLE\TRIMETHOPRIM
     Indication: ANAL ABSCESS
     Dosage: ?          QUANTITY:1 TABLET(S);?
     Route: 048
  6. MVI [Concomitant]
     Active Substance: VITAMINS
  7. LISINOPRIL. [Concomitant]
     Active Substance: LISINOPRIL

REACTIONS (1)
  - Renal failure [None]

NARRATIVE: CASE EVENT DATE: 20201031
